FAERS Safety Report 21373764 (Version 1)
Quarter: 2022Q3

REPORT INFORMATION
  Report Type: Spontaneous
  Country: DE (occurrence: DE)
  Receive Date: 20220926
  Receipt Date: 20220926
  Transmission Date: 20221026
  Serious: Yes (Hospitalization, Other)
  Sender: FDA-Public Use
  Company Number: DE-ADRED-05784-01

PATIENT
  Age: 65 Year
  Sex: Female

DRUGS (5)
  1. VENLAFAXINE [Suspect]
     Active Substance: VENLAFAXINE HYDROCHLORIDE
     Indication: Product used for unknown indication
     Dosage: 37.5 MILLIGRAM (37.5 MG, 1-0-0-0, RETARD-KAPSELN)
     Route: 048
  2. VENLAFAXINE [Suspect]
     Active Substance: VENLAFAXINE HYDROCHLORIDE
     Dosage: 756 MILLIGRAM (75 MG, 1-0-0-0, RETARD-KAPSELN )
     Route: 048
  3. EFEROX [Concomitant]
     Active Substance: LEVOTHYROXINE SODIUM
     Indication: Product used for unknown indication
     Dosage: UNK (00 ?G, 0.5-0-0-0, TABLETTEN0
     Route: 048
  4. BENSERAZIDE\LEVODOPA [Concomitant]
     Active Substance: BENSERAZIDE\LEVODOPA
     Indication: Product used for unknown indication
     Dosage: UNK (12.5|50 MG, 0-1-1-0, TABLETTEN0
     Route: 048
  5. TELMISARTAN [Concomitant]
     Active Substance: TELMISARTAN
     Indication: Product used for unknown indication
     Dosage: 40 MILLIGRAMC(40 MG, 1-0-0-0, TABLETTEN)
     Route: 048

REACTIONS (6)
  - Contraindicated product administered [Unknown]
  - Dyspnoea [Unknown]
  - Atrial fibrillation [Unknown]
  - Feeling hot [Unknown]
  - Abdominal pain [Unknown]
  - Palpitations [Unknown]
